FAERS Safety Report 5283859-8 (Version None)
Quarter: 2007Q1

REPORT INFORMATION
  Report Type: 
  Country: None (occurrence: None)
  Receive Date: 20070327
  Receipt Date: 20070319
  Transmission Date: 20070707
  Serious: Yes (Hospitalization)
  Sender: FDA-Public Use
  Company Number: WAES 0703USA03772

PATIENT
  Age: 8 Year
  Sex: Female

DRUGS (3)
  1. DECADRON [Suspect]
     Dosage: UNK/UNK/PO
     Route: 048
  2. INFUSION (FORM) IXABEPILONE UNK [Suspect]
     Indication: NEOPLASM
     Dosage: 7.8 MG/UNK/IV
     Route: 042
     Dates: start: 20070115, end: 20070119
  3. INFUSION (FORM) IXABEPILONE UNK [Suspect]
     Indication: NEOPLASM
     Dosage: 7.8 MG/UNK/IV
     Route: 042
     Dates: start: 20070206

REACTIONS (5)
  - ABDOMINAL PAIN [None]
  - HYPERSENSITIVITY [None]
  - HYPERTENSION [None]
  - LYMPHOPENIA [None]
  - URTICARIA [None]
